FAERS Safety Report 11092418 (Version 1)
Quarter: 2015Q2

REPORT INFORMATION
  Report Type: Spontaneous
  Country: FR (occurrence: FR)
  Receive Date: 20150506
  Receipt Date: 20150506
  Transmission Date: 20150821
  Serious: Yes (Hospitalization)
  Sender: FDA-Public Use
  Company Number: FR-ASTRAZENECA-2015SE40535

PATIENT
  Age: 26913 Day
  Sex: Male

DRUGS (10)
  1. SEROPLEX [Concomitant]
     Active Substance: ESCITALOPRAM OXALATE
  2. ROCEPHINE [Suspect]
     Active Substance: CEFTRIAXONE SODIUM
     Route: 042
     Dates: start: 20150226, end: 20150304
  3. ROVAMYCINE [Suspect]
     Active Substance: SPIRAMYCIN
     Dosage: 1.5 MILLION OF INTERNATIONAL UNITS
     Route: 042
     Dates: start: 20130226, end: 20150307
  4. INEXIUM [Suspect]
     Active Substance: ESOMEPRAZOLE
     Route: 048
     Dates: start: 20150226, end: 20150306
  5. PARACETAMOL [Suspect]
     Active Substance: ACETAMINOPHEN
     Route: 048
     Dates: start: 20150228, end: 20150307
  6. MODOPAR [Concomitant]
     Active Substance: BENSERAZIDE HYDROCHLORIDE\LEVODOPA
  7. TERBUTALINE [Suspect]
     Active Substance: TERBUTALINE
     Dosage: EVERY SIX HOURS
     Route: 065
     Dates: start: 20150226, end: 20150308
  8. CEFOTAXIME SODIQUE [Suspect]
     Active Substance: CEFOTAXIME SODIUM
     Route: 065
     Dates: start: 20150302
  9. TAMIFLU [Suspect]
     Active Substance: OSELTAMIVIR PHOSPHATE
     Dosage: DAILY
     Route: 048
     Dates: start: 20150303, end: 20150307
  10. TEMESTA [Concomitant]
     Active Substance: LORAZEPAM

REACTIONS (4)
  - Cholestasis [Recovering/Resolving]
  - Respiratory distress [None]
  - Hepatocellular injury [Recovered/Resolved]
  - Pneumonia [None]

NARRATIVE: CASE EVENT DATE: 20150302
